FAERS Safety Report 6597715-6 (Version None)
Quarter: 2010Q1

REPORT INFORMATION
  Report Type: 
  Country: None (occurrence: None)
  Receive Date: 20100223
  Receipt Date: 20100215
  Transmission Date: 20100710
  Serious: Yes (Death, Hospitalization)
  Sender: FDA-Public Use
  Company Number: TR-GENENTECH-298207

PATIENT
  Sex: Male

DRUGS (3)
  1. LUCENTIS [Suspect]
     Indication: DRUG USE FOR UNKNOWN INDICATION
     Dosage: UNK
     Route: 031
     Dates: start: 20100208
  2. ANTIBIOTICS (NOT SPECIFIED) [Concomitant]
     Indication: DRUG USE FOR UNKNOWN INDICATION
  3. STEROIDS NOS [Concomitant]
     Indication: DRUG USE FOR UNKNOWN INDICATION

REACTIONS (5)
  - CARDIO-RESPIRATORY ARREST [None]
  - CONJUNCTIVAL HYPERAEMIA [None]
  - ENDOPHTHALMITIS [None]
  - MYOCARDIAL INFARCTION [None]
  - VISUAL ACUITY REDUCED [None]
